FAERS Safety Report 5838824-6 (Version None)
Quarter: 2008Q3

REPORT INFORMATION
  Report Type: 
  Country: None (occurrence: None)
  Receive Date: 20080808
  Receipt Date: 20080731
  Transmission Date: 20090109
  Serious: Yes (Other)
  Sender: FDA-Public Use
  Company Number: GB-WYE-H05383508

PATIENT

DRUGS (1)
  1. AMIODARONE HCL [Suspect]

REACTIONS (1)
  - PULMONARY HAEMORRHAGE [None]
